FAERS Safety Report 5584288-X (Version None)
Quarter: 2008Q1

REPORT INFORMATION
  Report Type: 
  Country: None (occurrence: None)
  Receive Date: 20080108
  Receipt Date: 20071231
  Transmission Date: 20080703
  Serious: Yes (Life-Threatening, Hospitalization)
  Sender: FDA-Public Use
  Company Number: B0501641A

PATIENT
  Age: 12 Year
  Sex: Male

DRUGS (4)
  1. ZELITREX [Suspect]
     Dosage: 500MG TWICE PER DAY
     Route: 048
     Dates: start: 20071116, end: 20071119
  2. ORACILLIN [Suspect]
     Dosage: 500IU TWICE PER DAY
     Route: 048
     Dates: start: 20071027, end: 20071119
  3. FUNGIZONE [Concomitant]
     Dates: start: 20071116
  4. GARDENAL [Concomitant]
     Dates: start: 20071012

REACTIONS (3)
  - BLOOD LACTATE DEHYDROGENASE INCREASED [None]
  - HAEMOLYTIC ANAEMIA [None]
  - HAPTOGLOBIN DECREASED [None]
